FAERS Safety Report 6047821-X (Version None)
Quarter: 2009Q1

REPORT INFORMATION
  Report Type: 
  Country: None (occurrence: None)
  Receive Date: 20090123
  Receipt Date: 20090111
  Transmission Date: 20090719
  Serious: Yes (Other)
  Sender: FDA-Public Use
  Company Number: AU-PFIZER INC-2008100940

PATIENT

DRUGS (1)
  1. CHAMPIX [Suspect]
     Dates: start: 20081101

REACTIONS (2)
  - ASTHMA [None]
  - CONDITION AGGRAVATED [None]
